FAERS Safety Report 5663313-1 (Version None)
Quarter: 2008Q1

REPORT INFORMATION
  Report Type: 
  Country: None (occurrence: None)
  Receive Date: 20080307
  Receipt Date: 20080224
  Transmission Date: 20080703
  Serious: Yes (Hospitalization)
  Sender: FDA-Public Use
  Company Number: 2008-172671-NL

PATIENT
  Age: 48 Year
  Sex: Female

DRUGS (8)
  1. MIRTAZAPINE [Suspect]
     Indication: IMMUNISATION
     Dosage: 30 MG, ORAL
     Route: 048
     Dates: start: 20070914, end: 20071017
  2. SPIRONOLACTONE [Concomitant]
  3. CALCIUM CARBONATE [Concomitant]
  4. CARDIPRIN [Concomitant]
  5. DILTIAZEM HYDROCHLORIDE [Concomitant]
  6. ATORVASTATIN CALCIUM [Concomitant]
  7. OMEPRAZOLE [Concomitant]
  8. TELMISARTAN [Concomitant]

REACTIONS (3)
  - ELECTROLYTE IMBALANCE [None]
  - FLUID OVERLOAD [None]
  - HYPERTENSION [None]
